FAERS Safety Report 7082500-1 (Version None)
Quarter: 2010Q4

REPORT INFORMATION
  Report Type: 
  Country: None (occurrence: None)
  Receive Date: 20101104
  Receipt Date: 20101022
  Transmission Date: 20110411
  Serious: Yes (Hospitalization, Other)
  Sender: FDA-Public Use
  Company Number: TR-RANBAXY-2010RR-39172

PATIENT
  Age: 76 Year
  Sex: Female

DRUGS (1)
  1. CIPROFLOXACIN [Suspect]
     Indication: OROPHARYNGEAL PAIN
     Dosage: 750 MG, UNK
     Route: 048

REACTIONS (1)
  - UNEVALUABLE EVENT [None]
